FAERS Safety Report 7462574-6 (Version None)
Quarter: 2011Q2

REPORT INFORMATION
  Report Type: 
  Country: None (occurrence: None)
  Receive Date: 20110506
  Receipt Date: 20110428
  Transmission Date: 20111010
  Serious: Yes (Hospitalization)
  Sender: FDA-Public Use
  Company Number: FR-B.I. PHARMACEUTICALS,INC./RIDGEFIELD-2011-FF-00428FF

PATIENT
  Sex: Female
  Weight: 69 kg

DRUGS (3)
  1. PRADAXA [Suspect]
     Indication: THROMBOSIS PROPHYLAXIS
     Dosage: 220 MG
     Route: 048
     Dates: start: 20110322, end: 20110330
  2. ACETAMINOPHEN [Suspect]
     Route: 048
     Dates: start: 20110322, end: 20110330
  3. KETOPROFEN [Suspect]
     Dosage: 100 MG
     Route: 048
     Dates: start: 20110322, end: 20110329

REACTIONS (2)
  - ALANINE AMINOTRANSFERASE INCREASED [None]
  - ASPARTATE AMINOTRANSFERASE INCREASED [None]
